FAERS Safety Report 7213697-8 (Version None)
Quarter: 2011Q1

REPORT INFORMATION
  Report Type: 
  Country: None (occurrence: None)
  Receive Date: 20110106
  Receipt Date: 20101231
  Transmission Date: 20110831
  Serious: Yes (Death)
  Sender: FDA-Public Use
  Company Number: US-PFIZER INC-2011001759

PATIENT
  Age: 48 Year
  Sex: Male

DRUGS (5)
  1. AMLODIPINE BESYLATE AND ATORVASTATIN CALCIUM [Suspect]
     Route: 048
  2. ACE INHIBITOR NOS [Suspect]
     Route: 048
  3. HYDROCHLOROTHIAZIDE [Suspect]
     Route: 048
  4. SIMVASTATIN [Suspect]
     Route: 048
  5. BETA BLOCKING AGENTS [Suspect]
     Route: 048

REACTIONS (2)
  - COMPLETED SUICIDE [None]
  - INTENTIONAL DRUG MISUSE [None]
